FAERS Safety Report 4472504-7 (Version None)
Quarter: 2004Q3

REPORT INFORMATION
  Report Type: 
  Country: None (occurrence: None)
  Receive Date: 20040917
  Receipt Date: 20040712
  Transmission Date: 20050211
  Serious: No
  Sender: FDA-Public Use
  Company Number: US-JNJFOC-20040704178

PATIENT
  Age: 29 Year
  Sex: Female
  Weight: 49.4421 kg

DRUGS (3)
  1. ORTHO EVRA [Suspect]
     Indication: CONTRACEPTION
     Dosage: 1 DOSE(S), 3 IN 4 WEEK, TRANSDERMAL
     Route: 062
     Dates: start: 20030301
  2. ZYRTEC [Concomitant]
  3. SINGULAIR [Concomitant]

REACTIONS (3)
  - HEADACHE [None]
  - MENORRHAGIA [None]
  - MYALGIA [None]
